FAERS Safety Report 5827227-6 (Version None)
Quarter: 2008Q3

REPORT INFORMATION
  Report Type: 
  Country: None (occurrence: None)
  Receive Date: 20080730
  Receipt Date: 20080718
  Transmission Date: 20090109
  Serious: Yes (Hospitalization)
  Sender: FDA-Public Use
  Company Number: PL-MERCK-0807POL00008

PATIENT
  Age: 16 Year
  Sex: Female
  Weight: 48 kg

DRUGS (15)
  1. CANCIDAS [Suspect]
     Route: 065
  2. KETAMINE HYDROCHLORIDE [Concomitant]
     Route: 065
  3. MORPHINE [Concomitant]
     Route: 065
  4. MIDAZOLAM [Concomitant]
     Route: 065
  5. PROPOFOL [Concomitant]
     Route: 065
  6. MEROPENEM [Concomitant]
     Route: 065
  7. NETILMICIN SULFATE [Concomitant]
     Route: 065
  8. FLUCONAZOLE [Concomitant]
     Route: 065
  9. DOPAMINE HYDROCHLORIDE [Concomitant]
     Route: 065
  10. NOREPINEPHRINE HYDROCHLORIDE [Concomitant]
     Route: 065
  11. SULFAMETHOXAZOLE AND TRIMETHOPRIM [Concomitant]
     Route: 065
  12. TRIMETHOPRIM [Concomitant]
     Route: 065
  13. AMPHOTERICIN B [Concomitant]
     Route: 065
  14. VORICONAZOLE [Concomitant]
     Route: 065
  15. FILGRASTIM [Concomitant]
     Route: 065

REACTIONS (3)
  - HOSPITALISATION [None]
  - SUPERINFECTION BACTERIAL [None]
  - WITHDRAWAL SYNDROME [None]
